FAERS Safety Report 9513045 (Version 1)
Quarter: 2013Q1

REPORT INFORMATION
  Report Type: Spontaneous
  Country: US (occurrence: None)
  Receive Date: 20130305
  Receipt Date: 20130305
  Transmission Date: 20140127
  Serious: Yes (Other)
  Sender: FDA-Public Use
  Company Number: 163-21880-12101568

PATIENT
  Age: 74 Year
  Sex: Male

DRUGS (8)
  1. REVLIMID [Suspect]
     Indication: PLASMA CELL MYELOMA
     Dosage: 21 IN 28 D
     Route: 048
     Dates: start: 20080524
  2. SPIRIVA HANDIHALER [Concomitant]
  3. FLORICAL [Concomitant]
  4. RENAL CAPS DIALYSIS/STRESS VITAMIN SUPPLEMENT [Concomitant]
  5. CARVEDILOL [Concomitant]
  6. TYLENOL [Concomitant]
  7. WARFARIN [Concomitant]
  8. FORADIL [Concomitant]

REACTIONS (2)
  - Fatigue [None]
  - Therapeutic response decreased [None]
